FAERS Safety Report 12655027 (Version 8)
Quarter: 2017Q4

REPORT INFORMATION
  Report Type: Report from Study
  Country: US (occurrence: US)
  Receive Date: 20160816
  Receipt Date: 20171027
  Transmission Date: 20180320
  Serious: Yes (Death, Hospitalization)
  Sender: FDA-Public Use
  Company Number: US-EISAI MEDICAL RESEARCH-EC-2016-018715

PATIENT
  Age: 69 Year
  Sex: Male
  Weight: 83.1 kg

DRUGS (11)
  1. LEVOTHYROXINE. [Concomitant]
     Active Substance: LEVOTHYROXINE
  2. DEXAMETHASONE. [Concomitant]
     Active Substance: DEXAMETHASONE
  3. OMEPRAZOLE. [Concomitant]
     Active Substance: OMEPRAZOLE
  4. PHENOL TOPICAL [Concomitant]
  5. HYDROMORPHONE [Concomitant]
     Active Substance: HYDROMORPHONE
  6. LANSOPRAZOLE. [Concomitant]
     Active Substance: LANSOPRAZOLE
  7. LENVATINIB [Suspect]
     Active Substance: LENVATINIB
     Indication: PAPILLARY THYROID CANCER
     Route: 048
     Dates: start: 20160630, end: 20160714
  8. ATORVASTATIN [Concomitant]
     Active Substance: ATORVASTATIN
  9. HYDROCHLOROTHIAZIDE VALSARTAN [Concomitant]
     Active Substance: HYDROCHLOROTHIAZIDE\VALSARTAN
  10. SERTRALINE [Concomitant]
     Active Substance: SERTRALINE HYDROCHLORIDE
  11. NUTREN [Concomitant]

REACTIONS (2)
  - Pneumonia aspiration [Recovered/Resolved]
  - Tracheo-oesophageal fistula [Fatal]

NARRATIVE: CASE EVENT DATE: 20160715
